FAERS Safety Report 5997841-6 (Version None)
Quarter: 2008Q4

REPORT INFORMATION
  Report Type: 
  Country: None (occurrence: None)
  Receive Date: 20081212
  Receipt Date: 20081124
  Transmission Date: 20090506
  Serious: No
  Sender: FDA-Public Use
  Company Number: US-ABBOTT-08P-163-0489722-00

PATIENT
  Sex: Female
  Weight: 95.34 kg

DRUGS (11)
  1. HUMIRA [Suspect]
     Indication: CROHN'S DISEASE
     Dates: start: 20080801
  2. LAMOTRIGINE [Concomitant]
     Indication: MENTAL DISORDER
  3. ZIPRASIDONE HYDROCHLORIDE [Concomitant]
     Indication: MENTAL DISORDER
  4. MESALAMINE [Concomitant]
     Indication: CROHN'S DISEASE
  5. QUETIAPINE FUMARATE [Concomitant]
     Indication: MENTAL DISORDER
  6. BUPROPION HCL [Concomitant]
     Indication: MENTAL DISORDER
  7. SEASONALL [Concomitant]
     Indication: HYPERSENSITIVITY
  8. LEVOTHYROXINE SODIUM [Concomitant]
     Indication: HYPOTHYROIDISM
  9. OMEPRAZOLE MAGNESIUM [Concomitant]
     Indication: DRUG USE FOR UNKNOWN INDICATION
  10. VITAMIN CAP [Concomitant]
     Indication: ROUTINE HEALTH MAINTENANCE
  11. ASCORBIC ACID [Concomitant]
     Indication: ROUTINE HEALTH MAINTENANCE

REACTIONS (1)
  - INCORRECT DOSE ADMINISTERED [None]
